FAERS Safety Report 5447794-4 (Version None)
Quarter: 2007Q3

REPORT INFORMATION
  Report Type: 
  Country: None (occurrence: None)
  Receive Date: 20070910
  Receipt Date: 20070906
  Transmission Date: 20080115
  Serious: Yes (Death)
  Sender: FDA-Public Use
  Company Number: GB-ASTRAZENECA-2007GB01691

PATIENT
  Age: 21613 Day
  Sex: Female

DRUGS (6)
  1. SEROQUEL [Suspect]
     Indication: SCHIZOPHRENIA
     Route: 048
     Dates: start: 20070706
  2. CYMBALTA [Suspect]
     Indication: DEPRESSION
     Route: 048
     Dates: start: 20070706
  3. DIAZEPAM [Concomitant]
     Indication: ANXIETY
     Dosage: STARTED MORE THAN SIX MONTHS AGO AND BEING REDUCED BY 2.5MG WEEKLY
     Route: 048
  4. LATANOPROST [Concomitant]
     Indication: OPEN ANGLE GLAUCOMA
     Route: 047
  5. ANADIN EXTRA [Concomitant]
     Indication: OSTEOARTHRITIS
     Dosage: LONG TERM
     Route: 048
  6. CHLORPHENIRAMINE TAB [Concomitant]
     Indication: PRURITUS
     Dosage: LONG TERM
     Route: 048
     Dates: end: 20070701

REACTIONS (1)
  - CARDIO-RESPIRATORY ARREST [None]
